FAERS Safety Report 9259163 (Version 1)
Quarter: 2013Q2

REPORT INFORMATION
  Report Type: Spontaneous
  Country: US (occurrence: US)
  Receive Date: 20130426
  Receipt Date: 20130426
  Transmission Date: 20140414
  Serious: No
  Sender: FDA-Public Use
  Company Number: US-FOUGERA-2012FO001249

PATIENT
  Age: 91 Year
  Sex: Female
  Weight: 53.98 kg

DRUGS (11)
  1. TRIAMCINOLONE ACETONIDE [Suspect]
     Indication: LIP ULCERATION
     Route: 061
  2. TRIAMCINOLONE ACETONIDE [Suspect]
     Indication: FUNGAL INFECTION
     Route: 061
  3. SYNTHROID [Concomitant]
     Indication: HYPOPARATHYROIDISM
     Dosage: DOSE UNIT:50
     Route: 048
  4. CALCITRIOL [Concomitant]
     Indication: PARATHYROID DISORDER
     Route: 048
  5. RIVASTIGMINE [Concomitant]
     Indication: MEMORY IMPAIRMENT
     Route: 048
  6. FLUDROCORTISONE [Concomitant]
     Indication: HYPOTENSION
     Route: 048
     Dates: start: 2008
  7. POTASSIUM [Concomitant]
     Indication: MINERAL SUPPLEMENTATION
     Route: 048
     Dates: start: 20120714
  8. LUNESTA [Concomitant]
     Indication: SLEEP DISORDER THERAPY
     Route: 048
     Dates: start: 2004
  9. ONDANSETRON [Concomitant]
     Indication: NAUSEA
     Route: 048
     Dates: start: 201109
  10. LISINOPRIL [Concomitant]
     Indication: HYPERTENSION
  11. VITAMIN D [Concomitant]

REACTIONS (2)
  - Off label use [Not Recovered/Not Resolved]
  - Application site pain [Not Recovered/Not Resolved]
